FAERS Safety Report 5233642-4 (Version None)
Quarter: 2007Q1

REPORT INFORMATION
  Report Type: 
  Country: None (occurrence: None)
  Receive Date: 20070208
  Receipt Date: 20070202
  Transmission Date: 20070707
  Serious: Yes (Other)
  Sender: FDA-Public Use
  Company Number: JP-BAYER-200710101BYL

PATIENT
  Age: 64 Year
  Sex: Female

DRUGS (2)
  1. CIPROFLOXACIN [Suspect]
     Indication: VOMITING
     Dosage: UNIT DOSE: 200 MG
     Route: 048
     Dates: start: 20070129, end: 20070129
  2. TANNALBIN [Concomitant]
     Indication: DIARRHOEA
     Route: 048
     Dates: start: 20070129, end: 20070129

REACTIONS (2)
  - MYALGIA [None]
  - RHABDOMYOLYSIS [None]
